FAERS Safety Report 21134545 (Version 1)
Quarter: 2022Q3

REPORT INFORMATION
  Report Type: Spontaneous
  Country: US (occurrence: US)
  Receive Date: 20220727
  Receipt Date: 20220727
  Transmission Date: 20221027
  Serious: No
  Sender: FDA-Public Use
  Company Number: US-DENTSPLY PHARMACEUTICAL-2022SCDP000082

PATIENT
  Age: 60 Year
  Sex: Male

DRUGS (3)
  1. LIDOCAINE [Suspect]
     Active Substance: LIDOCAINE
     Indication: Arrhythmic storm
     Dosage: UNK INFUSION
     Route: 042
  2. AMIODARONE [Concomitant]
     Active Substance: AMIODARONE
     Indication: Arrhythmic storm
     Dosage: UNK INFUSION
     Route: 042
  3. MILRINONE [Concomitant]
     Active Substance: MILRINONE
     Indication: Congestive cardiomyopathy
     Dosage: UNK

REACTIONS (1)
  - Drug ineffective [Unknown]
